FAERS Safety Report 8175055-1 (Version None)
Quarter: 2012Q1

REPORT INFORMATION
  Report Type: 
  Country: None (occurrence: None)
  Receive Date: 20120229
  Receipt Date: 20120222
  Transmission Date: 20120608
  Serious: Yes (Other)
  Sender: FDA-Public Use
  Company Number: PHHY2012KR016366

PATIENT
  Sex: Male

DRUGS (3)
  1. SANDIMMUNE [Concomitant]
     Dosage: UNK UKN, UNK
  2. EXJADE [Suspect]
     Indication: MYELODYSPLASTIC SYNDROME
  3. EXJADE [Suspect]
     Indication: IRON OVERLOAD
     Dosage: UNK UKN, UNK
     Route: 048
     Dates: start: 20100426

REACTIONS (3)
  - JOINT DISLOCATION PATHOLOGICAL [None]
  - RESPIRATORY FAILURE [None]
  - ARTHRALGIA [None]
